FAERS Safety Report 5659420-X (Version None)
Quarter: 2008Q1

REPORT INFORMATION
  Report Type: 
  Country: None (occurrence: None)
  Receive Date: 20080311
  Receipt Date: 20080226
  Transmission Date: 20080703
  Serious: Yes (Other)
  Sender: FDA-Public Use
  Company Number: GB-RANBAXY-2008RR-13348

PATIENT

DRUGS (6)
  1. ATENOLOL TABLETS BP 50MG [Suspect]
     Indication: ATRIAL FIBRILLATION
     Dosage: 25 MG, UNK
     Route: 048
     Dates: start: 20071123, end: 20080201
  2. ASPIRIN [Concomitant]
     Dosage: UNK
     Route: 048
     Dates: start: 20071123
  3. FUROSEMIDE TABLETS BP 40MG [Concomitant]
     Dosage: 20 MG, UNK
     Route: 048
  4. LEVOTHYROXINE SODIUM [Concomitant]
     Dosage: 100 MG, UNK
     Route: 048
  5. LOSARTAN POTASSIUM [Concomitant]
     Dosage: 50 MG, UNK
     Route: 048
  6. LOSEC I.V. [Concomitant]
     Dosage: 20 MG, UNK
     Route: 048

REACTIONS (1)
  - DIARRHOEA [None]
